FAERS Safety Report 9562076 (Version 1)
Quarter: 2013Q3

REPORT INFORMATION
  Report Type: Spontaneous
  Country: US (occurrence: None)
  Receive Date: 20130830
  Receipt Date: 20130830
  Transmission Date: 20140515
  Serious: Yes (Other)
  Sender: FDA-Public Use
  Company Number: AMAG201203099

PATIENT
  Age: 87 Year
  Sex: Female
  Weight: 75.3 kg

DRUGS (5)
  1. FERAHEME (FERUMOXYTOL) INJECTION, 510MG [Suspect]
     Indication: ANAEMIA
     Route: 042
     Dates: start: 20120831, end: 20120831
  2. AMIODARONE [Concomitant]
  3. AMLODIPINE (AMLODIPINE MALEATE) [Concomitant]
  4. CHLORTHALIDONE [Concomitant]
  5. AZOPT (BRINZOLAMIDE) [Concomitant]

REACTIONS (4)
  - Loss of consciousness [None]
  - Feeling abnormal [None]
  - Cold sweat [None]
  - Retching [None]
